FAERS Safety Report 13137709 (Version 5)
Quarter: 2018Q4

REPORT INFORMATION
  Report Type: Spontaneous
  Country: US (occurrence: US)
  Receive Date: 20170123
  Receipt Date: 20181011
  Transmission Date: 20190204
  Serious: No
  Sender: FDA-Public Use
  Company Number: US-UNITED THERAPEUTICS-UNT-2016-013200

PATIENT
  Age: 26 Year
  Sex: Female

DRUGS (1)
  1. REMODULIN [Suspect]
     Active Substance: TREPROSTINIL
     Indication: PULMONARY ARTERIAL HYPERTENSION
     Dosage: UNK
     Route: 058
     Dates: start: 20030101

REACTIONS (3)
  - Inappropriate schedule of product administration [Recovered/Resolved]
  - Infusion site reaction [Unknown]
  - Infusion site pain [Unknown]

NARRATIVE: CASE EVENT DATE: 20030101
